FAERS Safety Report 6148528-0 (Version None)
Quarter: 2009Q2

REPORT INFORMATION
  Report Type: 
  Country: None (occurrence: None)
  Receive Date: 20090406
  Receipt Date: 20090406
  Transmission Date: 20091009
  Serious: No
  Sender: FDA-Public Use
  Company Number: None

PATIENT
  Age: 9 Year
  Sex: Female
  Weight: 38.5557 kg

DRUGS (2)
  1. HEAD AND SHOULDERS 1% PRYTHINE ZINC PROCTER AND GAMBLE [Suspect]
     Dosage: 1-2 SHAMPOOING EACH DAILY TOP
     Route: 061
     Dates: start: 20090214, end: 20090403
  2. SUAVE CONDITIONER [Concomitant]

REACTIONS (1)
  - ALOPECIA [None]
